FAERS Safety Report 8297979-7 (Version None)
Quarter: 2012Q2

REPORT INFORMATION
  Report Type: 
  Country: None (occurrence: None)
  Receive Date: 20120419
  Receipt Date: 20120320
  Transmission Date: 20120825
  Serious: Yes (Hospitalization)
  Sender: FDA-Public Use
  Company Number: US-BAYER-2012-027745

PATIENT
  Age: 44 Year
  Sex: Female
  Weight: 77.098 kg

DRUGS (2)
  1. YAZ [Suspect]
     Dosage: UNK
  2. MULTI-VITAMINS [Concomitant]
     Dosage: 1 TABLET AS NEEDED
     Route: 048

REACTIONS (1)
  - PULMONARY EMBOLISM [None]
